FAERS Safety Report 5441613-8 (Version None)
Quarter: 2007Q3

REPORT INFORMATION
  Report Type: 
  Country: None (occurrence: None)
  Receive Date: 20070904
  Receipt Date: 20070824
  Transmission Date: 20080115
  Serious: Yes (Other)
  Sender: FDA-Public Use
  Company Number: DE-JNJFOC-20070806635

PATIENT
  Weight: 83 kg

DRUGS (7)
  1. REMICADE [Suspect]
     Indication: ANKYLOSING SPONDYLITIS
     Route: 042
  2. SYNTESTAN [Concomitant]
  3. TRAMADOL HCL [Concomitant]
  4. TEVETEN PLUS [Concomitant]
  5. METOPROLOL SUCCINATE [Concomitant]
  6. OMEP [Concomitant]
  7. NOVALGIN [Concomitant]

REACTIONS (1)
  - BLADDER CANCER [None]
